FAERS Safety Report 9976129 (Version 1)
Quarter: 2014Q1

REPORT INFORMATION
  Report Type: Report from Study
  Country: US (occurrence: US)
  Receive Date: 20140306
  Receipt Date: 20140306
  Transmission Date: 20141002
  Serious: No
  Sender: FDA-Public Use
  Company Number: US-ABBVIE-13P-163-1165402-00

PATIENT
  Sex: Female
  Weight: 61.29 kg

DRUGS (2)
  1. HUMIRA [Suspect]
     Indication: RHEUMATOID ARTHRITIS
     Route: 058
     Dates: start: 2004
  2. OMEPRAZOLE [Concomitant]
     Indication: GASTROOESOPHAGEAL REFLUX DISEASE

REACTIONS (6)
  - Uterine leiomyoma [Not Recovered/Not Resolved]
  - Menorrhagia [Recovering/Resolving]
  - Anaemia [Not Recovered/Not Resolved]
  - Arthropod bite [Recovered/Resolved]
  - Rash papular [Recovering/Resolving]
  - Rash macular [Recovering/Resolving]
